FAERS Safety Report 12462644 (Version 4)
Quarter: 2016Q3

REPORT INFORMATION
  Report Type: Spontaneous
  Country: US (occurrence: US)
  Receive Date: 20160614
  Receipt Date: 20160829
  Transmission Date: 20161109
  Serious: Yes (Disabling)
  Sender: FDA-Public Use
  Company Number: US-SHIRE-US201607194

PATIENT
  Sex: Female
  Weight: 62 kg

DRUGS (1)
  1. VYVANSE [Suspect]
     Active Substance: LISDEXAMFETAMINE DIMESYLATE
     Indication: ATTENTION DEFICIT/HYPERACTIVITY DISORDER
     Dosage: 50 MG, 1X/DAY:QD
     Route: 048
     Dates: end: 2016

REACTIONS (3)
  - White matter lesion [Not Recovered/Not Resolved]
  - Aphasia [Not Recovered/Not Resolved]
  - Dysphemia [Not Recovered/Not Resolved]

NARRATIVE: CASE EVENT DATE: 2013
